FAERS Safety Report 4688163-4 (Version None)
Quarter: 2005Q2

REPORT INFORMATION
  Report Type: 
  Country: None (occurrence: None)
  Receive Date: 20050609
  Receipt Date: 20050525
  Transmission Date: 20051028
  Serious: Yes (Other)
  Sender: FDA-Public Use
  Company Number: 206922

PATIENT
  Age: 53 Year
  Sex: Female
  Weight: 68.0396 kg

DRUGS (19)
  1. AVONEX [Suspect]
     Indication: MULTIPLE SCLEROSIS
     Dosage: 30 MG;QW; IM
     Route: 030
     Dates: start: 20030601, end: 20031201
  2. AVONEX [Suspect]
     Indication: MULTIPLE SCLEROSIS
     Dosage: 30 MG;QW; IM
     Route: 030
     Dates: start: 20031201, end: 20040101
  3. AVONEX [Suspect]
     Indication: MULTIPLE SCLEROSIS
     Dosage: 30 MG;QW; IM
     Route: 030
     Dates: start: 20040101, end: 20041101
  4. PEPCID [Concomitant]
  5. HYDROCHLOROTHIAZIDE [Concomitant]
  6. KLONOPIN [Concomitant]
  7. PREMARIN [Concomitant]
  8. BACLOFEN [Concomitant]
  9. OXYCONTIN [Concomitant]
  10. HYDROCODONE/ACETAMINOPHEN [Concomitant]
  11. CYANOCOBALAMIN [Concomitant]
  12. ALPRAZOLAM [Concomitant]
  13. CONCERTA [Concomitant]
  14. METHYLPHENIDATE HCL [Concomitant]
  15. FLUOXETINE [Concomitant]
  16. ACETAMINOPHEN W/ CODEINE [Concomitant]
  17. MORPHINE SULFATE [Concomitant]
  18. CAPITROL [Concomitant]
  19. METROGEL [Concomitant]

REACTIONS (8)
  - ANXIETY [None]
  - ARTHRALGIA [None]
  - CONDITION AGGRAVATED [None]
  - DEPRESSION [None]
  - HYPOAESTHESIA [None]
  - INFLUENZA LIKE ILLNESS [None]
  - MALIGNANT MELANOMA IN SITU [None]
  - MEMORY IMPAIRMENT [None]
